FAERS Safety Report 10416609 (Version 3)
Quarter: 2015Q1

REPORT INFORMATION
  Report Type: Spontaneous
  Country: JP (occurrence: JP)
  Receive Date: 20140828
  Receipt Date: 20150303
  Transmission Date: 20150720
  Serious: Yes (Death, Life-Threatening, Other)
  Sender: FDA-Public Use
  Company Number: JP-AMGEN-JPNSP2014065296

PATIENT
  Age: 47 Year
  Sex: Male
  Weight: 69.9 kg

DRUGS (4)
  1. CALCIUM LEVOFOLINATE [Concomitant]
     Active Substance: LEVOLEUCOVORIN CALCIUM
     Indication: COLORECTAL CANCER RECURRENT
     Dosage: UNK UNK, Q2WEEKS
     Route: 041
     Dates: start: 20140305, end: 20140905
  2. VECTIBIX [Suspect]
     Active Substance: PANITUMUMAB
     Indication: COLORECTAL CANCER RECURRENT
     Dosage: UNK UNK, Q2WEEKS
     Route: 041
     Dates: start: 20140319, end: 20140905
  3. OXALIPLATIN. [Concomitant]
     Active Substance: OXALIPLATIN
     Indication: COLORECTAL CANCER RECURRENT
     Dosage: UNK UNK, Q2WEEKS
     Route: 041
     Dates: start: 20140305, end: 20140905
  4. FLUOROURACIL. [Concomitant]
     Active Substance: FLUOROURACIL
     Indication: COLORECTAL CANCER RECURRENT
     Dosage: UNK UNK, Q2WEEKS
     Route: 042
     Dates: start: 20140305, end: 20140905

REACTIONS (5)
  - Intra-abdominal haemorrhage [Recovered/Resolved]
  - Rash [Recovered/Resolved]
  - Device related infection [Recovered/Resolved]
  - Alopecia [Not Recovered/Not Resolved]
  - Hepatic failure [Fatal]

NARRATIVE: CASE EVENT DATE: 201404
